FAERS Safety Report 14853513 (Version 1)
Quarter: 2018Q2

REPORT INFORMATION
  Report Type: Spontaneous
  Country: US (occurrence: US)
  Receive Date: 20180507
  Receipt Date: 20180507
  Transmission Date: 20180711
  Serious: No
  Sender: FDA-Public Use
  Company Number: US-SHIRE-US201817273

PATIENT
  Age: 40 Year
  Sex: Female

DRUGS (1)
  1. XIIDRA [Suspect]
     Active Substance: LIFITEGRAST
     Indication: DRY EYE
     Dosage: 5 %, 2X/DAY:BID
     Route: 047
     Dates: start: 201804, end: 201804

REACTIONS (4)
  - Hypersensitivity [Unknown]
  - Instillation site swelling [Unknown]
  - Instillation site erythema [Unknown]
  - Instillation site reaction [Recovered/Resolved]

NARRATIVE: CASE EVENT DATE: 201804
